FAERS Safety Report 15412923 (Version 1)
Quarter: 2018Q4

REPORT INFORMATION
  Report Type: Spontaneous
  Country: DE (occurrence: DE)
  Receive Date: 20180921
  Receipt Date: 20180921
  Transmission Date: 20190204
  Serious: Yes (Hospitalization, Other)
  Sender: FDA-Public Use
  Company Number: DE-GLENMARK PHARMACEUTICALS-2018GMK037175

PATIENT

DRUGS (2)
  1. GLEPARK 0.18MG TABLETTEN [Suspect]
     Active Substance: PRAMIPEXOLE DIHYDROCHLORIDE
     Indication: RESTLESS LEGS SYNDROME
     Dosage: 0.18 MG, OD (IN THE EVENING)
     Route: 065
  2. GLEPARK 0.18MG TABLETTEN [Suspect]
     Active Substance: PRAMIPEXOLE DIHYDROCHLORIDE
     Indication: PARKINSON^S DISEASE
     Dosage: 0.18 MG, OD (IN THE EVENING)
     Route: 065

REACTIONS (21)
  - Hemiplegia [Unknown]
  - Polyneuropathy [Unknown]
  - Initial insomnia [Unknown]
  - Cerebral infarction [Unknown]
  - Panic disorder [Unknown]
  - Nicotine dependence [Unknown]
  - Hemiparesis [Unknown]
  - Depression [Unknown]
  - Middle insomnia [Unknown]
  - Dementia [Not Recovered/Not Resolved]
  - Headache [Unknown]
  - Cognitive disorder [Unknown]
  - Agoraphobia [Unknown]
  - Pain in extremity [Unknown]
  - Compulsive shopping [Not Recovered/Not Resolved]
  - Impulse-control disorder [Unknown]
  - Cerebrovascular accident [Unknown]
  - Muscle rigidity [Unknown]
  - Stress [Unknown]
  - Gait disturbance [Recovering/Resolving]
  - Product use in unapproved indication [Unknown]
